FAERS Safety Report 8174278-5 (Version None)
Quarter: 2012Q1

REPORT INFORMATION
  Report Type: 
  Country: None (occurrence: None)
  Receive Date: 20120229
  Receipt Date: 20120214
  Transmission Date: 20120608
  Serious: Yes (Hospitalization)
  Sender: FDA-Public Use
  Company Number: FR-FRI-1000026774

PATIENT
  Age: 83 Year
  Sex: Female

DRUGS (2)
  1. ESCITALOPRAM [Suspect]
     Indication: DEPRESSION
     Route: 048
     Dates: end: 20110701
  2. GALANTAMINE HYDROBROMIDE [Concomitant]
     Indication: DEMENTIA

REACTIONS (2)
  - CONVULSION [None]
  - HYPONATRAEMIA [None]
